FAERS Safety Report 4881904-2 (Version None)
Quarter: 2006Q1

REPORT INFORMATION
  Report Type: 
  Country: None (occurrence: None)
  Receive Date: 20060117
  Receipt Date: 20060106
  Transmission Date: 20060701
  Serious: Yes (Hospitalization)
  Sender: FDA-Public Use
  Company Number: PHHO2006JP00749

PATIENT
  Age: 52 Year
  Sex: Male
  Weight: 74 kg

DRUGS (10)
  1. DIOVAN [Suspect]
     Indication: HYPERTENSION
     Dosage: 80 MG, QD
     Route: 048
     Dates: start: 20030710, end: 20041104
  2. AMARYL [Concomitant]
     Indication: DIABETES MELLITUS
     Dosage: 2 MG, UNK
     Route: 048
     Dates: start: 20030710
  3. AMARYL [Concomitant]
     Dosage: 1 MG, UNK
     Route: 048
     Dates: end: 20041104
  4. URSO [Concomitant]
     Indication: HEPATITIS
     Dosage: 600 MG, UNK
     Route: 048
     Dates: start: 20030710
  5. URSO [Concomitant]
     Dosage: 300 MG, UNK
     Route: 048
     Dates: end: 20041104
  6. MEVALOTIN [Concomitant]
     Indication: HYPERCHOLESTEROLAEMIA
     Dosage: 20 MG, UNK
     Route: 048
     Dates: start: 20030710
  7. MEVALOTIN [Concomitant]
     Dosage: 10 MG, UNK
     Route: 048
     Dates: end: 20041104
  8. SERMION [Concomitant]
     Indication: CEREBRAL HAEMORRHAGE
     Dosage: 5 MG, UNK
     Route: 048
     Dates: start: 20030710, end: 20041104
  9. TAKEPRON [Concomitant]
     Indication: REFLUX OESOPHAGITIS
     Dosage: 30 MG, UNK
     Route: 048
     Dates: start: 20030710, end: 20041104
  10. MELBIN [Concomitant]
     Dosage: 250 MG, UNK
     Route: 048
     Dates: start: 20041028, end: 20041104

REACTIONS (3)
  - CEREBRAL INFARCTION [None]
  - CEREBRAL THROMBOSIS [None]
  - HEMIPLEGIA [None]
